FAERS Safety Report 7079770-2 (Version None)
Quarter: 2010Q4

REPORT INFORMATION
  Report Type: 
  Country: None (occurrence: None)
  Receive Date: 20101102
  Receipt Date: 20101027
  Transmission Date: 20110411
  Serious: Yes (Hospitalization)
  Sender: FDA-Public Use
  Company Number: DE-ABBOTT-10P-062-0658014-00

PATIENT
  Sex: Male

DRUGS (5)
  1. HUMIRA [Suspect]
     Indication: PSORIASIS
     Route: 058
     Dates: start: 20080523
  2. CLONT [Suspect]
     Indication: HELICOBACTER INFECTION
  3. NEXIUM [Suspect]
     Indication: HELICOBACTER INFECTION
  4. CLARITHROMYCIN [Suspect]
     Indication: HELICOBACTER INFECTION
  5. GABAPENTIN [Concomitant]
     Indication: PRODUCT USED FOR UNKNOWN INDICATION

REACTIONS (6)
  - ABDOMINAL PAIN [None]
  - DIARRHOEA [None]
  - FOOD POISONING [None]
  - GASTRIC ULCER HELICOBACTER [None]
  - NAUSEA [None]
  - ORAL CANDIDIASIS [None]
